FAERS Safety Report 25141286 (Version 1)
Quarter: 2025Q1

REPORT INFORMATION
  Report Type: Spontaneous
  Country: US (occurrence: None)
  Receive Date: 20250330
  Receipt Date: 20250330
  Transmission Date: 20250408
  Serious: No
  Sender: FDA-CTU
  Company Number: None

PATIENT
  Age: 58 Year
  Sex: Male
  Weight: 101.7 kg

DRUGS (11)
  1. RITUXIMAB [Suspect]
     Active Substance: RITUXIMAB
  2. FLUDROCORTISONE [Concomitant]
     Active Substance: FLUDROCORTISONE
  3. MIDODRINE [Concomitant]
     Active Substance: MIDODRINE
  4. SUCRALFATE [Concomitant]
     Active Substance: SUCRALFATE
  5. SODIUM CHLORIDE [Concomitant]
     Active Substance: SODIUM CHLORIDE
  6. ATORVASTATIN [Concomitant]
     Active Substance: ATORVASTATIN
  7. VITAMIN D3 [Concomitant]
     Active Substance: CHOLECALCIFEROL
  8. B12 [Concomitant]
  9. Men^s one-a-day 50+ vitamin [Concomitant]
  10. MAGNESIUM GLYCINATE [Concomitant]
     Active Substance: MAGNESIUM GLYCINATE
  11. Relaxium Sleep support [Concomitant]

REACTIONS (25)
  - Abdominal pain upper [None]
  - Nausea [None]
  - Vomiting [None]
  - Dyspepsia [None]
  - Flatulence [None]
  - Abdominal distension [None]
  - Rhinorrhoea [None]
  - Paranasal sinus hypersecretion [None]
  - Epistaxis [None]
  - Lacrimation increased [None]
  - Chills [None]
  - Oropharyngeal pain [None]
  - Dysphagia [None]
  - Dizziness [None]
  - Insomnia [None]
  - Chest pain [None]
  - Back pain [None]
  - Nervous system disorder [None]
  - Visual impairment [None]
  - Photophobia [None]
  - Parosmia [None]
  - Paraesthesia oral [None]
  - Electric shock sensation [None]
  - Hypoaesthesia [None]
  - Groin pain [None]

NARRATIVE: CASE EVENT DATE: 20241020
